FAERS Safety Report 4377357-3 (Version None)
Quarter: 2004Q2

REPORT INFORMATION
  Report Type: 
  Country: None (occurrence: None)
  Receive Date: 20040609
  Receipt Date: 20040413
  Transmission Date: 20050107
  Serious: No
  Sender: FDA-Public Use
  Company Number: 2004207606US

PATIENT
  Age: 79 Year
  Sex: Female

DRUGS (5)
  1. BEXTRA [Suspect]
     Indication: ARTHRITIS
     Dosage: 20 MG QD
     Route: 065
     Dates: start: 20040301
  2. AVALIDE [Concomitant]
  3. TOPROL-XL [Concomitant]
  4. CRESTOR [Concomitant]
  5. FOLGARD [Concomitant]

REACTIONS (3)
  - BLOOD PRESSURE INCREASED [None]
  - COLD SWEAT [None]
  - OEDEMA PERIPHERAL [None]
